FAERS Safety Report 23055643 (Version 1)
Quarter: 2023Q4

REPORT INFORMATION
  Report Type: Spontaneous
  Country: US (occurrence: None)
  Receive Date: 20231010
  Receipt Date: 20231010
  Transmission Date: 20240110
  Serious: Yes (Other)
  Sender: FDA-Public Use
  Company Number: None

PATIENT
  Age: 85 Year
  Sex: Female
  Weight: 58.42 kg

DRUGS (10)
  1. PRAMIPEXOLE DIHYDROCHLORIDE [Suspect]
     Active Substance: PRAMIPEXOLE DIHYDROCHLORIDE
     Indication: Restless legs syndrome
     Dosage: FREQUENCY : AT BEDTIME;?
     Route: 048
     Dates: start: 20180301, end: 20220909
  2. PRAMIPEXOLE DIHYDROCHLORIDE [Suspect]
     Active Substance: PRAMIPEXOLE DIHYDROCHLORIDE
     Indication: Neuropathy peripheral
  3. GABAPENTIN [Concomitant]
     Active Substance: GABAPENTIN
  4. PANTOPRAZOLE [Concomitant]
     Active Substance: PANTOPRAZOLE
  5. DOCUSATE SODIUM [Concomitant]
     Active Substance: DOCUSATE SODIUM
  6. MIRALAX [Concomitant]
     Active Substance: POLYETHYLENE GLYCOL 3350
  7. OCUVITE [Concomitant]
     Active Substance: VITAMINS
  8. CALCIUM CHEW [Concomitant]
  9. RECLAST [Concomitant]
     Active Substance: ZOLEDRONIC ACID
  10. CPAP 6-12 CWP WITH NASAL MASK (LIMITED USE) [Concomitant]

REACTIONS (3)
  - Sleep attacks [None]
  - Road traffic accident [None]
  - Adverse drug reaction [None]
